FAERS Safety Report 25725192 (Version 2)
Quarter: 2025Q3

REPORT INFORMATION
  Report Type: Spontaneous
  Country: GT (occurrence: GT)
  Receive Date: 20250826
  Receipt Date: 20250902
  Transmission Date: 20251020
  Serious: Yes (Disabling)
  Sender: ROCHE
  Company Number: GT-ROCHE-10000356930

PATIENT
  Age: 46 Year
  Sex: Male

DRUGS (9)
  1. AVASTIN [Suspect]
     Active Substance: BEVACIZUMAB
     Indication: Diabetic retinopathy
     Dosage: AVASTIN 100 MG/4 ML (BEVACIZUMAB)?BEVACIZUMAB 1.25 MG/DL
     Route: 050
     Dates: start: 20250717
  2. DEFLAZACORT [Concomitant]
     Active Substance: DEFLAZACORT
  3. TRIAMCINOLONE [Concomitant]
     Active Substance: TRIAMCINOLONE
     Route: 050
  4. PREDNISONE ACETATE [Concomitant]
     Active Substance: PREDNISONE ACETATE
  5. DEXAMETHASONE [Concomitant]
     Active Substance: DEXAMETHASONE
  6. MOXIFLOXACIN [Concomitant]
     Active Substance: MOXIFLOXACIN
  7. TROPICAMIDE [Concomitant]
     Active Substance: TROPICAMIDE
  8. PHENYLEPHRINE [Concomitant]
     Active Substance: PHENYLEPHRINE
  9. ISOTONIC SODIUM CHLORIDE SOLUTION [Concomitant]
     Active Substance: SODIUM CHLORIDE
     Route: 047

REACTIONS (11)
  - Visual acuity reduced [Recovered/Resolved]
  - Eye pain [Recovered/Resolved]
  - Conjunctival hyperaemia [Unknown]
  - Corneal disorder [Unknown]
  - Anterior chamber cell [Unknown]
  - Hypotony of eye [Unknown]
  - Vitreal cells [Unknown]
  - Blindness [Unknown]
  - Pain [Unknown]
  - Inflammation [Unknown]
  - Off label use [Unknown]

NARRATIVE: CASE EVENT DATE: 20250717
